FAERS Safety Report 22183333 (Version 2)
Quarter: 2023Q2

REPORT INFORMATION
  Report Type: Spontaneous
  Country: US (occurrence: US)
  Receive Date: 20230406
  Receipt Date: 20230425
  Transmission Date: 20230722
  Serious: No
  Sender: FDA-Public Use
  Company Number: US-ALLERGAN-2304590US

PATIENT
  Age: 62 Year
  Sex: Female
  Weight: 70.306 kg

DRUGS (1)
  1. QULIPTA [Suspect]
     Active Substance: ATOGEPANT
     Indication: Migraine
     Dosage: 30 MG, QD
     Route: 048
     Dates: start: 20230129

REACTIONS (6)
  - Asthenopia [Unknown]
  - Pruritus [Unknown]
  - Pain [Recovering/Resolving]
  - Hypersensitivity [Unknown]
  - Somnolence [Unknown]
  - Fatigue [Not Recovered/Not Resolved]

NARRATIVE: CASE EVENT DATE: 20230101
